FAERS Safety Report 13364005 (Version 4)
Quarter: 2017Q2

REPORT INFORMATION
  Report Type: Spontaneous
  Country: JP (occurrence: JP)
  Receive Date: 20170323
  Receipt Date: 20170427
  Transmission Date: 20170830
  Serious: Yes (Hospitalization, Disabling)
  Sender: FDA-Public Use
  Company Number: JP-JNJFOC-20170227117

PATIENT
  Age: 74 Year
  Sex: Male
  Weight: 46 kg

DRUGS (6)
  1. REBAMIPIDE [Suspect]
     Active Substance: REBAMIPIDE
     Indication: PRODUCT USED FOR UNKNOWN INDICATION
     Route: 048
     Dates: start: 20170206, end: 20170220
  2. MICAMLO [Concomitant]
     Active Substance: AMLODIPINE BESYLATE\TELMISARTAN
     Route: 048
     Dates: end: 20170220
  3. AMLODIPINE [Suspect]
     Active Substance: AMLODIPINE BESYLATE
     Indication: PRODUCT USED FOR UNKNOWN INDICATION
     Route: 048
     Dates: end: 20170220
  4. CELECOX [Concomitant]
     Active Substance: CELECOXIB
     Indication: PSORIASIS
     Route: 048
     Dates: start: 20161214, end: 20170220
  5. DOVOBET [Concomitant]
     Active Substance: BETAMETHASONE\CALCIPOTRIENE
     Indication: PSORIASIS
     Dosage: APPROPRIATE DOSE PER DAY
     Route: 051
     Dates: start: 20161214, end: 20170120
  6. REMICADE [Suspect]
     Active Substance: INFLIXIMAB
     Indication: PSORIATIC ARTHROPATHY
     Route: 042
     Dates: start: 20170210, end: 20170210

REACTIONS (2)
  - Interstitial lung disease [Recovered/Resolved with Sequelae]
  - Respiratory failure [Unknown]

NARRATIVE: CASE EVENT DATE: 20170214
